FAERS Safety Report 6919453-X (Version None)
Quarter: 2010Q3

REPORT INFORMATION
  Report Type: 
  Country: None (occurrence: None)
  Receive Date: 20100811
  Receipt Date: 20100805
  Transmission Date: 20110219
  Serious: Yes (Hospitalization)
  Sender: FDA-Public Use
  Company Number: B0668611A

PATIENT
  Sex: Male

DRUGS (1)
  1. AUGMENTIN '125' [Suspect]
     Indication: DENTAL CARE
     Dosage: 1UNIT THREE TIMES PER DAY
     Route: 048
     Dates: start: 20100308, end: 20100315

REACTIONS (7)
  - CONDITION AGGRAVATED [None]
  - HEPATITIS CHOLESTATIC [None]
  - HEPATOCELLULAR INJURY [None]
  - HYPERSENSITIVITY [None]
  - JAUNDICE [None]
  - PRURITUS [None]
  - RASH PAPULAR [None]
